FAERS Safety Report 4982965-2 (Version None)
Quarter: 2006Q2

REPORT INFORMATION
  Report Type: 
  Country: None (occurrence: None)
  Receive Date: 20060426
  Receipt Date: 20060406
  Transmission Date: 20061013
  Serious: Yes (Life-Threatening, Hospitalization)
  Sender: FDA-Public Use
  Company Number: US-SANOFI-SYNTHELABO-A03200602149

PATIENT
  Sex: Male
  Weight: 80.7 kg

DRUGS (2)
  1. ELOXATIN [Suspect]
     Indication: COLON CANCER METASTATIC
     Route: 042
     Dates: start: 20060405, end: 20060405
  2. LEUCOVORIN [Concomitant]
     Route: 042
     Dates: start: 20051130

REACTIONS (2)
  - DIZZINESS [None]
  - GRAND MAL CONVULSION [None]
